FAERS Safety Report 9657002 (Version 3)
Quarter: 2013Q4

REPORT INFORMATION
  Report Type: Report from Study
  Country: FR (occurrence: FR)
  Receive Date: 20131030
  Receipt Date: 20131101
  Transmission Date: 20140711
  Serious: Yes (Hospitalization)
  Sender: FDA-Public Use
  Company Number: FR-ROCHE-1090261

PATIENT
  Age: 54 Year
  Sex: Male
  Weight: 60 kg

DRUGS (2)
  1. PEG-INTERFERON ALFA 2A [Suspect]
     Indication: CHRONIC HEPATITIS B
     Dosage: DOSE PRIOR TO EVENT: 2/DEC/2009
     Route: 065
     Dates: start: 20091019
  2. VIREAD [Concomitant]
     Route: 065
     Dates: start: 20091209

REACTIONS (2)
  - Prostatitis [Recovered/Resolved]
  - Benign prostatic hyperplasia [Recovered/Resolved]
